FAERS Safety Report 9227713 (Version 2)
Quarter: 2013Q2

REPORT INFORMATION
  Report Type: Report from Study
  Country: BE (occurrence: BE)
  Receive Date: 20130412
  Receipt Date: 20130531
  Transmission Date: 20140414
  Serious: Yes (Death, Hospitalization)
  Sender: FDA-Public Use
  Company Number: BE-TEVA-396714ISR

PATIENT
  Age: 60 Year
  Sex: Male
  Weight: 76 kg

DRUGS (14)
  1. OXALIPLATIN [Suspect]
     Indication: COLORECTAL CANCER METASTATIC
     Dosage: 170 MILLIGRAM DAILY;
     Route: 042
     Dates: start: 20121219
  2. 5 FU [Suspect]
     Indication: COLORECTAL CANCER METASTATIC
     Dosage: 800 MILLIGRAM DAILY;
     Route: 040
     Dates: start: 20121219
  3. 5 FU [Suspect]
     Indication: COLORECTAL CANCER METASTATIC
     Dosage: 4200 MILLIGRAM DAILY;
     Route: 042
     Dates: start: 20121219
  4. TIVOZANIB [Suspect]
     Indication: COLORECTAL CANCER METASTATIC
     Dosage: 1.5 MILLIGRAM DAILY;
     Route: 048
     Dates: start: 20121219
  5. LEUCOVORIN CALCIUM [Suspect]
     Indication: COLORECTAL CANCER METASTATIC
     Dosage: 800 MILLIGRAM DAILY;
     Route: 042
     Dates: start: 20121219
  6. PANTOMED [Concomitant]
     Dates: start: 200908, end: 20130313
  7. ZOLPIDEM [Concomitant]
     Dates: start: 2010, end: 20130318
  8. DAFALGAN [Concomitant]
     Dates: start: 20121015, end: 20130315
  9. LITICAN [Concomitant]
     Dates: start: 20121219, end: 20130317
  10. PRIMPERAN [Concomitant]
     Dates: start: 20121219, end: 20130313
  11. PARACETAMOL [Concomitant]
     Dates: start: 20130313, end: 20130318
  12. FRAXIPARINE [Concomitant]
     Dates: start: 20130313, end: 20130318
  13. NILSTAT [Concomitant]
     Dates: start: 20130313, end: 20130317
  14. TRAMADOL [Concomitant]
     Dates: start: 20130313, end: 20130317

REACTIONS (3)
  - Asthenia [Fatal]
  - Perihepatic abscess [Fatal]
  - Peritonitis bacterial [Fatal]
